FAERS Safety Report 5626461-8 (Version None)
Quarter: 2008Q1

REPORT INFORMATION
  Report Type: 
  Country: None (occurrence: None)
  Receive Date: 20080214
  Receipt Date: 20080204
  Transmission Date: 20080703
  Serious: Yes (Hospitalization, Other)
  Sender: FDA-Public Use
  Company Number: US-ELI_LILLY_AND_COMPANY-US200712003433

PATIENT
  Sex: Male
  Weight: 55.147 kg

DRUGS (10)
  1. FORTEO [Suspect]
     Indication: OSTEOPOROSIS
     Dosage: 20 UG, UNK
     Route: 058
     Dates: start: 20070730, end: 20071201
  2. ACETAMINOPHEN [Concomitant]
     Dosage: UP TO SIX TABLETS PER DAY
     Dates: start: 20070320
  3. CALCIUM WITH VITAMIN D /00944201/ [Concomitant]
     Dosage: 600 MG/ 200 MG 3/D
     Dates: start: 20070320
  4. FLOMAX [Concomitant]
     Dosage: 0.4 MG, 2/D
     Dates: start: 20061204
  5. LORAZEPAM [Concomitant]
     Dosage: 1 MG, EACH EVENING
     Dates: start: 20061206
  6. LOTENSIN HCT [Concomitant]
     Dosage: 20 MG/ 25 MG PER TAB
     Dates: start: 20061113
  7. NORVASC [Concomitant]
     Dosage: 5 MG, DAILY (1/D)
     Dates: start: 20070320
  8. TESTOSTERONE CIPIONATE [Concomitant]
     Indication: BLOOD TESTOSTERONE DECREASED
     Dosage: 200 MG, MONTHLY (1/M)
     Route: 030
     Dates: start: 20070406
  9. VITAMINS NOS [Concomitant]
     Dates: start: 20070320
  10. NEXIUM [Concomitant]
     Dates: start: 20071008

REACTIONS (11)
  - ATRIAL FLUTTER [None]
  - BACK PAIN [None]
  - BURSITIS [None]
  - COMPRESSION FRACTURE [None]
  - DIZZINESS [None]
  - HOSPITALISATION [None]
  - INSOMNIA [None]
  - MYALGIA [None]
  - NEURALGIA [None]
  - RENAL FAILURE [None]
  - SPINAL COMPRESSION FRACTURE [None]
